FAERS Safety Report 12135808 (Version 5)
Quarter: 2016Q4

REPORT INFORMATION
  Report Type: Spontaneous
  Country: CA (occurrence: CA)
  Receive Date: 20160302
  Receipt Date: 20161115
  Transmission Date: 20170206
  Serious: Yes (Other)
  Sender: FDA-Public Use
  Company Number: CA-BEH-2016059261

PATIENT
  Age: 72 Year
  Sex: Female
  Weight: 75 kg

DRUGS (13)
  1. PRIVIGEN [Suspect]
     Active Substance: HUMAN IMMUNOGLOBULIN G
     Indication: DERMATOMYOSITIS
     Dosage: INFUSION RATE: START 23 ML/H, END 180 ML/H.
     Route: 042
     Dates: start: 20150922, end: 20150926
  2. PRIVIGEN [Suspect]
     Active Substance: HUMAN IMMUNOGLOBULIN G
     Indication: MULTIFOCAL MOTOR NEUROPATHY
  3. PRIVIGEN [Suspect]
     Active Substance: HUMAN IMMUNOGLOBULIN G
     Indication: WEST NILE VIRUS TEST POSITIVE
     Dosage: INFUSION RATE: START 180 ML/H, END 180 ML/H.
     Route: 042
     Dates: start: 20150922, end: 20150926
  4. LASIX [Concomitant]
     Active Substance: FUROSEMIDE
     Route: 042
     Dates: start: 20150922
  5. ASC ACID [Concomitant]
  6. ZINC [Concomitant]
     Active Substance: ZINC\ZINC CHLORIDE
  7. TYLENOL [Concomitant]
     Active Substance: ACETAMINOPHEN
  8. ZANTAC [Concomitant]
     Active Substance: RANITIDINE HYDROCHLORIDE
  9. DILANTIN [Concomitant]
     Active Substance: PHENYTOIN
     Route: 042
     Dates: start: 20150922
  10. NACL [Concomitant]
     Active Substance: SODIUM CHLORIDE
  11. ACYCLOVIR. [Concomitant]
     Active Substance: ACYCLOVIR
     Route: 042
     Dates: start: 20150922
  12. LOVENOX [Concomitant]
     Active Substance: ENOXAPARIN SODIUM
  13. COLACE [Concomitant]
     Active Substance: DOCUSATE SODIUM

REACTIONS (3)
  - Coombs direct test positive [Recovered/Resolved]
  - Haemolysis [Recovered/Resolved]
  - Candiduria [Recovered/Resolved]

NARRATIVE: CASE EVENT DATE: 20150922
